FAERS Safety Report 4592735-5 (Version None)
Quarter: 2005Q1

REPORT INFORMATION
  Report Type: 
  Country: None (occurrence: None)
  Receive Date: 20050228
  Receipt Date: 20041222
  Transmission Date: 20050727
  Serious: Yes (Death, Hospitalization)
  Sender: FDA-Public Use
  Company Number: GB-BRISTOL-MYERS SQUIBB COMPANY-12803466

PATIENT
  Age: 68 Year
  Sex: Male
  Weight: 76 kg

DRUGS (12)
  1. CARBOPLATIN [Suspect]
     Indication: MESOTHELIOMA
     Route: 042
     Dates: start: 20041008, end: 20041008
  2. ALIMTA [Suspect]
     Indication: MESOTHELIOMA
     Route: 042
     Dates: start: 20041008, end: 20041008
  3. FOLIC ACID [Concomitant]
     Dates: start: 20040730
  4. OXYCONTIN [Concomitant]
     Indication: PAIN
     Dates: start: 20040917
  5. OXYCONTIN [Concomitant]
     Dates: start: 20040917
  6. GABAPENTIN [Concomitant]
     Indication: PAIN
     Dates: start: 20040917
  7. ACETAMINOPHEN [Concomitant]
     Indication: PAIN
     Dates: start: 20040917
  8. VITAMIN B-12 [Concomitant]
     Dates: start: 20040730, end: 20040917
  9. DEXAMETHASONE [Concomitant]
     Dates: start: 20040805, end: 20041010
  10. LANSOPRAZOLE [Concomitant]
     Indication: ULCER
     Dates: start: 20041008
  11. DOCUSATE SODIUM [Concomitant]
     Indication: CONSTIPATION
     Dates: start: 20041008
  12. DICLOFENAC [Concomitant]
     Indication: PAIN
     Dates: start: 20041008

REACTIONS (6)
  - BRONCHOPNEUMONIA [None]
  - CONFUSIONAL STATE [None]
  - DYSPNOEA [None]
  - HYPONATRAEMIA [None]
  - MESOTHELIOMA [None]
  - RESPIRATORY ACIDOSIS [None]
